FAERS Safety Report 5030198-6 (Version None)
Quarter: 2006Q2

REPORT INFORMATION
  Report Type: 
  Country: None (occurrence: None)
  Receive Date: 20060614
  Receipt Date: 20060525
  Transmission Date: 20061013
  Serious: Yes (Other)
  Sender: FDA-Public Use
  Company Number: AU200606000916

PATIENT
  Sex: Male

DRUGS (1)
  1. FLUOXETINE HCL [Suspect]

REACTIONS (2)
  - BLOOD BILIRUBIN INCREASED [None]
  - CHOLESTASIS [None]
